FAERS Safety Report 5511477-2 (Version None)
Quarter: 2007Q4

REPORT INFORMATION
  Report Type: 
  Country: None (occurrence: None)
  Receive Date: 20071109
  Receipt Date: 20071107
  Transmission Date: 20080405
  Serious: Yes (Life-Threatening, Hospitalization)
  Sender: FDA-Public Use
  Company Number: FR-ASTRAZENECA-2007CG01570

PATIENT
  Age: 16474 Day
  Sex: Male

DRUGS (4)
  1. DIPRIVAN [Suspect]
     Indication: ANAESTHESIA
     Route: 042
     Dates: start: 20071004, end: 20071004
  2. SUFENTA [Suspect]
     Indication: ANAESTHESIA
     Route: 042
     Dates: start: 20071004, end: 20071004
  3. CELOCURINE [Suspect]
     Route: 042
     Dates: start: 20071004, end: 20071004
  4. ATARAX [Suspect]
     Route: 042
     Dates: start: 20071004, end: 20071004

REACTIONS (5)
  - BRONCHOSPASM [None]
  - FACE OEDEMA [None]
  - HYPOTENSION [None]
  - RASH ERYTHEMATOUS [None]
  - TACHYCARDIA [None]
